FAERS Safety Report 21653751 (Version 16)
Quarter: 2023Q2

REPORT INFORMATION
  Report Type: Other
  Country: GB (occurrence: GB)
  Receive Date: 20221129
  Receipt Date: 20230405
  Transmission Date: 20230722
  Serious: Yes (Death, Hospitalization, Congenital Anomaly, Other)
  Sender: FDA-Public Use
  Company Number: GB-HETERO-HET2019GB00641

PATIENT

DRUGS (59)
  1. EMTRICITABINE\TENOFOVIR DISOPROXIL [Suspect]
     Active Substance: EMTRICITABINE\TENOFOVIR DISOPROXIL
     Indication: HIV infection
     Dosage: 1 DOSAGE FORM, QD
     Route: 048
  2. EMTRICITABINE\TENOFOVIR DISOPROXIL [Suspect]
     Active Substance: EMTRICITABINE\TENOFOVIR DISOPROXIL
     Indication: Supplementation therapy
     Dosage: 1 DOSAGE FORM, QD, TABLET
     Route: 048
     Dates: start: 20171006, end: 20180205
  3. EMTRICITABINE\TENOFOVIR DISOPROXIL [Suspect]
     Active Substance: EMTRICITABINE\TENOFOVIR DISOPROXIL
     Dosage: 1 DOSAGE FORM, QD, TABLET
     Route: 048
     Dates: start: 20180205
  4. EMTRICITABINE\TENOFOVIR DISOPROXIL [Suspect]
     Active Substance: EMTRICITABINE\TENOFOVIR DISOPROXIL
     Dosage: 1 DOSAGE FORM, QD, TABLET
     Route: 048
     Dates: start: 20180205
  5. EMTRICITABINE\TENOFOVIR DISOPROXIL [Suspect]
     Active Substance: EMTRICITABINE\TENOFOVIR DISOPROXIL
     Dosage: 1 DOSAGE FORM, QD
     Route: 048
  6. METFORMIN [Suspect]
     Active Substance: METFORMIN HYDROCHLORIDE
     Indication: Product used for unknown indication
     Dosage: UNK,
     Route: 065
  7. METFORMIN [Suspect]
     Active Substance: METFORMIN HYDROCHLORIDE
     Dosage: UNK, TABLET (UNCOATED, ORAL)
     Route: 048
  8. METFORMIN [Suspect]
     Active Substance: METFORMIN HYDROCHLORIDE
     Dosage: UNK
     Route: 065
  9. TENOFOVIR DISOPROXIL PHOSPHATE [Suspect]
     Active Substance: TENOFOVIR DISOPROXIL PHOSPHATE
     Indication: HIV infection
     Dosage: 1 DOSAGE FORM, QD
     Route: 048
  10. TENOFOVIR DISOPROXIL PHOSPHATE [Suspect]
     Active Substance: TENOFOVIR DISOPROXIL PHOSPHATE
     Dosage: 1 DOSAGE FORM, QD
     Route: 048
     Dates: start: 20180205
  11. TENOFOVIR DISOPROXIL PHOSPHATE [Suspect]
     Active Substance: TENOFOVIR DISOPROXIL PHOSPHATE
     Dosage: 1 DOSAGE FORM, QD
     Route: 048
     Dates: start: 20171006, end: 20180205
  12. TENOFOVIR DISOPROXIL PHOSPHATE [Suspect]
     Active Substance: TENOFOVIR DISOPROXIL PHOSPHATE
     Dosage: 300 MILLIGRAM, QD
     Route: 048
     Dates: start: 20100610
  13. TENOFOVIR DISOPROXIL PHOSPHATE [Suspect]
     Active Substance: TENOFOVIR DISOPROXIL PHOSPHATE
     Dosage: 1 DOSAGE FORM, QD
     Route: 048
     Dates: start: 20171006
  14. TENOFOVIR DISOPROXIL PHOSPHATE [Suspect]
     Active Substance: TENOFOVIR DISOPROXIL PHOSPHATE
     Dosage: 1 DOSAGE FORM, QD
     Route: 048
     Dates: start: 20180205
  15. EFAVIRENZ [Suspect]
     Active Substance: EFAVIRENZ
     Indication: HIV infection
     Dosage: 1 DOSAGE FORM, QD
     Route: 048
     Dates: start: 20171006
  16. EFAVIRENZ [Suspect]
     Active Substance: EFAVIRENZ
     Dosage: UNK
     Route: 048
     Dates: start: 20171006
  17. EFAVIRENZ [Suspect]
     Active Substance: EFAVIRENZ
     Dosage: 1 DOSAGE FORM, QD
     Route: 048
     Dates: start: 20180205
  18. FOLIC ACID [Suspect]
     Active Substance: FOLIC ACID
     Indication: Supplementation therapy
     Dosage: 1 DOSAGE FORM, 1 TABLET/CAPSULE
     Route: 048
  19. FOLIC ACID [Suspect]
     Active Substance: FOLIC ACID
     Dosage: 1 DOSAGE FORM, QD, UNK-FOLATE
     Route: 048
  20. FOLIC ACID [Suspect]
     Active Substance: FOLIC ACID
     Dosage: 1 DOSAGE FORM, QD
     Route: 048
  21. LABETALOL [Suspect]
     Active Substance: LABETALOL\LABETALOL HYDROCHLORIDE
     Indication: Product used for unknown indication
     Dosage: UNK
     Route: 048
  22. LABETALOL [Suspect]
     Active Substance: LABETALOL\LABETALOL HYDROCHLORIDE
     Dosage: UNK
     Route: 048
  23. INSULIN ASPART [Suspect]
     Active Substance: INSULIN ASPART
     Indication: Product used for unknown indication
     Dosage: UNK
     Route: 065
  24. INSULIN ASPART [Suspect]
     Active Substance: INSULIN ASPART
     Dosage: UNK
     Route: 065
  25. INSULIN ASPART [Suspect]
     Active Substance: INSULIN ASPART
     Dosage: UNK
     Route: 065
  26. INSULIN ASPART [Suspect]
     Active Substance: INSULIN ASPART
     Dosage: UNK
     Route: 065
  27. TRUVADA [Suspect]
     Active Substance: EMTRICITABINE\TENOFOVIR DISOPROXIL FUMARATE
     Indication: HIV infection
     Dosage: 1 DOSAGE FORM, QD
     Route: 048
     Dates: start: 20171006, end: 20180205
  28. TRUVADA [Suspect]
     Active Substance: EMTRICITABINE\TENOFOVIR DISOPROXIL FUMARATE
     Indication: Supplementation therapy
     Dosage: 1 DOSAGE FORM, QD
     Route: 048
     Dates: start: 20180205
  29. TRUVADA [Suspect]
     Active Substance: EMTRICITABINE\TENOFOVIR DISOPROXIL FUMARATE
     Dosage: 1 DOSAGE FORM, QD
     Route: 048
  30. TRUVADA [Suspect]
     Active Substance: EMTRICITABINE\TENOFOVIR DISOPROXIL FUMARATE
     Dosage: 1 DOSAGE FORM, QD
     Route: 048
     Dates: start: 20171006, end: 20180205
  31. KALETRA [Suspect]
     Active Substance: LOPINAVIR\RITONAVIR
     Indication: HIV infection
     Dosage: UNK
     Route: 048
     Dates: start: 20100610
  32. KALETRA [Suspect]
     Active Substance: LOPINAVIR\RITONAVIR
     Indication: Antiviral treatment
     Dosage: UNK
     Route: 048
     Dates: start: 20100610
  33. LAMIVUDINE [Suspect]
     Active Substance: LAMIVUDINE
     Indication: Antiretroviral therapy
     Dosage: 300 MG, QD
     Route: 048
     Dates: start: 20090101, end: 20100610
  34. NEVIRAPINE [Suspect]
     Active Substance: NEVIRAPINE
     Indication: Antiretroviral therapy
     Dosage: 400 MG, QD
     Route: 048
     Dates: start: 20090101, end: 20100610
  35. NEVIRAPINE [Suspect]
     Active Substance: NEVIRAPINE
     Dosage: 400 MG, QD
     Route: 048
     Dates: start: 20090101, end: 20100610
  36. EFAVIRENZ [Suspect]
     Active Substance: EFAVIRENZ
     Indication: HIV infection
     Dosage: 1 DOSAGE FORM, QD
     Route: 048
     Dates: start: 20171006
  37. LOPINAVIR\RITONAVIR [Suspect]
     Active Substance: LOPINAVIR\RITONAVIR
     Indication: Antiviral treatment
     Dosage: UNK
     Route: 048
     Dates: start: 20100610, end: 20100610
  38. LOPINAVIR\RITONAVIR [Suspect]
     Active Substance: LOPINAVIR\RITONAVIR
     Indication: HIV infection
     Dosage: UNK
     Route: 048
     Dates: start: 20100610
  39. LOPINAVIR\RITONAVIR [Suspect]
     Active Substance: LOPINAVIR\RITONAVIR
     Dosage: UNK
     Route: 048
     Dates: start: 20100610
  40. VITAMIN B12 [Suspect]
     Active Substance: CYANOCOBALAMIN
     Indication: Supplementation therapy
     Dosage: UNK
     Route: 065
  41. VITAMIN B12 [Suspect]
     Active Substance: CYANOCOBALAMIN
     Dosage: UNK
     Route: 065
  42. VITAMIN B12 [Suspect]
     Active Substance: CYANOCOBALAMIN
     Dosage: UNK
     Route: 065
  43. VITAMIN B12 [Suspect]
     Active Substance: CYANOCOBALAMIN
     Dosage: UNK
     Route: 065
  44. ZIDOVUDINE [Suspect]
     Active Substance: ZIDOVUDINE
     Indication: Antiviral treatment
     Dosage: 600 MG, QD
     Route: 048
     Dates: start: 20090110, end: 20100610
  45. ZIDOVUDINE [Suspect]
     Active Substance: ZIDOVUDINE
     Dosage: 800 MG, QD
     Route: 048
     Dates: start: 20100610, end: 20100610
  46. ISENTRESS [Suspect]
     Active Substance: RALTEGRAVIR POTASSIUM
     Indication: HIV infection
     Dosage: 800 MG, QID, EVERY 6 HOUR
     Route: 048
     Dates: start: 20100610
  47. ISENTRESS [Suspect]
     Active Substance: RALTEGRAVIR POTASSIUM
     Dosage: 800 MG, QID, EVERY 6 HOUR
     Route: 048
     Dates: start: 20100610
  48. ISENTRESS [Suspect]
     Active Substance: RALTEGRAVIR POTASSIUM
     Dosage: 800 MG, QID
     Route: 048
     Dates: start: 20100610
  49. EMTRICITABINE\TENOFOVIR DISOPROXIL [Suspect]
     Active Substance: EMTRICITABINE\TENOFOVIR DISOPROXIL
     Indication: HIV infection
     Dosage: 1 DOSAGE FORM, QD
     Route: 048
     Dates: start: 20171006
  50. EMTRICITABINE\TENOFOVIR DISOPROXIL [Suspect]
     Active Substance: EMTRICITABINE\TENOFOVIR DISOPROXIL
     Dosage: 1 DOSAGE FORM, QD
     Route: 048
     Dates: start: 20180205
  51. CYANOCOBALAMIN [Suspect]
     Active Substance: CYANOCOBALAMIN
     Indication: Supplementation therapy
     Dosage: UNK
     Route: 065
  52. LOPINAVIR [Suspect]
     Active Substance: LOPINAVIR
     Indication: HIV infection
     Dosage: UNK
     Route: 048
     Dates: start: 20100610
  53. LOPINAVIR [Suspect]
     Active Substance: LOPINAVIR
     Indication: Antiviral treatment
  54. EMTRICITABINE [Suspect]
     Active Substance: EMTRICITABINE
     Indication: HIV infection
     Dosage: 1 DOSAGE FORM, QD
     Route: 048
     Dates: start: 20171006, end: 20180205
  55. EMTRICITABINE [Suspect]
     Active Substance: EMTRICITABINE
     Indication: Supplementation therapy
     Dosage: 1 DOSAGE FORM, QD
     Route: 048
     Dates: start: 20171006
  56. EMTRICITABINE [Suspect]
     Active Substance: EMTRICITABINE
     Dosage: 1 DOSAGE FORM, QD
     Route: 048
     Dates: start: 20180205
  57. EMTRICITABINE [Suspect]
     Active Substance: EMTRICITABINE
     Dosage: 1 DOSAGE FORM, QD
     Route: 048
  58. RITONAVIR [Suspect]
     Active Substance: RITONAVIR
     Indication: HIV infection
     Dosage: UNK
     Route: 048
     Dates: start: 20100610
  59. RITONAVIR [Suspect]
     Active Substance: RITONAVIR
     Indication: Antiviral treatment

REACTIONS (9)
  - Alanine aminotransferase increased [Fatal]
  - Aspartate aminotransferase increased [Fatal]
  - Hepatic cytolysis [Fatal]
  - Abortion spontaneous [Fatal]
  - Intentional product use issue [Fatal]
  - Exposure during pregnancy [Unknown]
  - Maternal exposure during pregnancy [Fatal]
  - Drug abuse [Unknown]
  - Off label use [Unknown]

NARRATIVE: CASE EVENT DATE: 20120521
